FAERS Safety Report 14610132 (Version 4)
Quarter: 2018Q3

REPORT INFORMATION
  Report Type: Report from Study
  Country: US (occurrence: US)
  Receive Date: 20180307
  Receipt Date: 20180929
  Transmission Date: 20181010
  Serious: No
  Sender: FDA-Public Use
  Company Number: PHEH2018US007524

PATIENT
  Sex: Male

DRUGS (1)
  1. ENTRESTO [Suspect]
     Active Substance: SACUBITRIL\VALSARTAN
     Indication: PRODUCT USED FOR UNKNOWN INDICATION
     Dosage: UNK
     Route: 048
     Dates: start: 201708

REACTIONS (6)
  - Limb discomfort [Unknown]
  - Pain in extremity [Unknown]
  - Heart rate increased [Unknown]
  - Dizziness [Recovering/Resolving]
  - Muscle spasms [Unknown]
  - Bone pain [Unknown]
